FAERS Safety Report 9422550 (Version 1)
Quarter: 2013Q3

REPORT INFORMATION
  Report Type: Spontaneous
  Country: US (occurrence: None)
  Receive Date: 20130715
  Receipt Date: 20130715
  Transmission Date: 20140515
  Serious: Yes (Hospitalization)
  Sender: FDA-Public Use
  Company Number: 2013036833

PATIENT
  Age: 83 Year
  Sex: Female
  Weight: 159 kg

DRUGS (13)
  1. PRIVIGEN (IMMUNE GLOBULIN INTRAVENOUS (HUMAN) 10% LIQUID) [Suspect]
     Indication: IMMUNODEFICIENCY COMMON VARIABLE
     Route: 042
     Dates: start: 20130529, end: 20130529
  2. LIPITOR (ATORVASTATIN CALCIUM) [Concomitant]
  3. LASIX (FUROSEMIDE) [Concomitant]
  4. LISINOPRIL (LISINOPRIL) [Concomitant]
  5. BISOPROLOL (BISOPROLOL) [Concomitant]
  6. ASPIRIN (ACETYLSALICYLIC ACID) [Concomitant]
  7. SYNTHROID (LEVOTHYROXINE SODIUM) [Concomitant]
  8. LIBRIUM (CHLORDIAZEPOXIDE) [Concomitant]
  9. XOPENEX HFA (LEVOSALBUTAMOL) [Concomitant]
  10. PULMICORT (BUDESONIDE) [Concomitant]
  11. SPIRIVA (TIOTROPIUM BROMIDE) [Concomitant]
  12. ALBUTEROL (SALBUTAMOL) [Concomitant]
  13. COUMADIN (WARFARIN SODIUM) [Concomitant]

REACTIONS (6)
  - Palpitations [None]
  - Chills [None]
  - Pyrexia [None]
  - Fatigue [None]
  - Malaise [None]
  - Heart rate increased [None]
